FAERS Safety Report 8831994 (Version 1)
Quarter: 2012Q4

REPORT INFORMATION
  Report Type: 
  Country: GB (occurrence: GB)
  Receive Date: 20121009
  Receipt Date: 20121009
  Transmission Date: 20130627
  Serious: Yes (Other)
  Sender: FDA-Public Use
  Company Number: GB-ROCHE-1142445

PATIENT
  Age: 73 Year
  Sex: Female
  Weight: 75 kg

DRUGS (12)
  1. CAPECITABINE [Suspect]
     Indication: GASTROINTESTINAL CARCINOMA
     Route: 048
  2. OXALIPLATIN [Suspect]
     Indication: GASTROINTESTINAL CARCINOMA
     Route: 042
  3. ATENOLOL [Concomitant]
     Route: 065
  4. BUCCASTEM [Concomitant]
  5. DEXAMETHASONE [Concomitant]
  6. LANTUS [Concomitant]
  7. LISINOPRIL [Concomitant]
     Route: 065
  8. METFORMIN [Concomitant]
     Route: 065
  9. METOCLOPRAMIDE [Concomitant]
  10. NOVORAPID [Concomitant]
  11. SIMVASTATIN [Concomitant]
     Route: 065
  12. ZOPICLONE [Concomitant]
     Route: 065
     Dates: start: 20120831

REACTIONS (4)
  - Pneumonia aspiration [Not Recovered/Not Resolved]
  - Ileus [Not Recovered/Not Resolved]
  - Lactic acidosis [Not Recovered/Not Resolved]
  - Shock [Not Recovered/Not Resolved]
